FAERS Safety Report 9698072 (Version 2)
Quarter: 2013Q4

REPORT INFORMATION
  Report Type: Spontaneous
  Country: FR (occurrence: None)
  Receive Date: 20131031
  Receipt Date: 20131112
  Transmission Date: 20140711
  Serious: Yes (Hospitalization)
  Sender: FDA-Public Use
  Company Number: 2013038603

PATIENT
  Age: 59 Year
  Sex: Female

DRUGS (6)
  1. PRIVIGEN [Suspect]
     Indication: DERMATOMYOSITIS
     Dosage: 90 GM INTRAVENOUS (NOT OTHERWISE SPECIFIED)
     Route: 042
     Dates: start: 20130821
  2. METHOTREXATE (METHOTREXATE) [Concomitant]
  3. CORTANCYL (PREDNISONE) [Concomitant]
  4. ACTONEL (RISEDRONATE SODIUM) [Concomitant]
  5. SPECIAFOLDINE (FOLIC ACID) [Concomitant]
  6. PLAVIX [Concomitant]

REACTIONS (8)
  - Meningitis aseptic [None]
  - Chills [None]
  - Off label use [None]
  - Headache [None]
  - Vomiting [None]
  - No therapeutic response [None]
  - Myalgia [None]
  - Vertigo [None]
